FAERS Safety Report 5107600-4 (Version None)
Quarter: 2006Q3

REPORT INFORMATION
  Report Type: 
  Country: None (occurrence: None)
  Receive Date: 20060913
  Receipt Date: 20060913
  Transmission Date: 20061208
  Serious: Yes (Hospitalization)
  Sender: FDA-Public Use
  Company Number: None

PATIENT
  Sex: Female
  Weight: 50.59 kg

DRUGS (6)
  1. CYCLOPHOSPHAMIDE [Suspect]
     Dosage: SEE IMAGE
  2. DOXORUBICIN HYDROCHLORIDE [Suspect]
     Dosage: SEE IMAGE
  3. ETOPOSIDE [Suspect]
     Dosage: SEE IMAGE
  4. PREDNISONE TAB [Suspect]
     Dosage: SEE IMAGE
  5. RITUXIMAB (MAAB C2B8 ANTI CD20, CHIMERIC) [Suspect]
     Dosage: SEE IMAGE
  6. VINCRISTINE SULFATE [Concomitant]
     Dosage: SEE IMAGE

REACTIONS (2)
  - FEBRILE NEUTROPENIA [None]
  - STOMATITIS [None]
